FAERS Safety Report 14310169 (Version 1)
Quarter: 2017Q4

REPORT INFORMATION
  Report Type: Spontaneous
  Country: MY (occurrence: MY)
  Receive Date: 20171220
  Receipt Date: 20171220
  Transmission Date: 20180321
  Serious: Yes (Other)
  Sender: FDA-Public Use
  Company Number: MY-PFIZER INC-2017542143

PATIENT
  Age: 8 Year
  Sex: Male

DRUGS (1)
  1. MEROPENEM. [Suspect]
     Active Substance: MEROPENEM
     Indication: SEPSIS
     Route: 042

REACTIONS (2)
  - Acute generalised exanthematous pustulosis [Recovered/Resolved]
  - Dermatitis exfoliative [Recovered/Resolved]
